FAERS Safety Report 8533193-5 (Version None)
Quarter: 2012Q2

REPORT INFORMATION
  Report Type: 
  Country: None (occurrence: None)
  Receive Date: 20120412
  Receipt Date: 20100611
  Transmission Date: 20120825
  Serious: Yes (Hospitalization, Other)
  Sender: FDA-Public Use
  Company Number: PHHY2010US36839

PATIENT
  Age: 30 Year
  Sex: Male

DRUGS (1)
  1. CLOZARIL [Suspect]
     Indication: SCHIZOPHRENIA

REACTIONS (8)
  - WHITE BLOOD CELL DISORDER [None]
  - PYREXIA [None]
  - WHITE BLOOD CELL COUNT INCREASED [None]
  - SHIFT TO THE LEFT [None]
  - MALAISE [None]
  - DIARRHOEA [None]
  - PAIN [None]
  - MENTAL IMPAIRMENT [None]
